FAERS Safety Report 7353741-0 (Version None)
Quarter: 2011Q1

REPORT INFORMATION
  Report Type: 
  Country: None (occurrence: None)
  Receive Date: 20110315
  Receipt Date: 20110303
  Transmission Date: 20110831
  Serious: Yes (Hospitalization)
  Sender: FDA-Public Use
  Company Number: JP-PFIZER INC-2011027302

PATIENT
  Age: 54 Year
  Sex: Male

DRUGS (5)
  1. ESTRACYT [Suspect]
     Dosage: 560 MG, 1X/DAY
     Route: 048
     Dates: start: 20071108, end: 20080306
  2. CASODEX [Suspect]
     Indication: PROSTATE CANCER METASTATIC
     Dosage: 80 MG, 1X/DAY
     Route: 048
     Dates: start: 20070502, end: 20071108
  3. ODYNE [Suspect]
     Indication: PROSTATE CANCER METASTATIC
     Dosage: 250 MG, 1X/DAY
     Route: 048
     Dates: start: 20080306, end: 20080403
  4. DIETHYLSTILBESTROL [Suspect]
     Indication: PROSTATE CANCER METASTATIC
     Dosage: 250 MG, 1X/DAY
     Route: 048
     Dates: start: 20070417, end: 20070502
  5. ESTRACYT [Suspect]
     Indication: PROSTATE CANCER METASTATIC
     Dosage: 560 MG, 1X/DAY
     Dates: start: 20080403

REACTIONS (2)
  - DESMOID TUMOUR [None]
  - NEOPLASM MALIGNANT [None]
